FAERS Safety Report 15465997 (Version 5)
Quarter: 2019Q3

REPORT INFORMATION
  Report Type: Spontaneous
  Country: US (occurrence: US)
  Receive Date: 20181004
  Receipt Date: 20190711
  Transmission Date: 20191004
  Serious: No
  Sender: FDA-Public Use
  Company Number: US-GLAXOSMITHKLINE-US2018GSK174186

PATIENT
  Age: 49 Year
  Sex: Female

DRUGS (1)
  1. LAMICTAL [Suspect]
     Active Substance: LAMOTRIGINE
     Indication: PRODUCT USED FOR UNKNOWN INDICATION
     Dosage: 25 MG, TID
     Route: 048
     Dates: start: 2012

REACTIONS (10)
  - Psychiatric decompensation [Unknown]
  - Dyspnoea [Unknown]
  - Hyperhidrosis [Unknown]
  - Influenza [Unknown]
  - Anxiety [Unknown]
  - Ill-defined disorder [Unknown]
  - Malaise [Unknown]
  - Vomiting [Unknown]
  - Product dose omission [Unknown]
  - Treatment noncompliance [Unknown]

NARRATIVE: CASE EVENT DATE: 201903
